FAERS Safety Report 14557436 (Version 4)
Quarter: 2020Q2

REPORT INFORMATION
  Report Type: Report from Study
  Country: GB (occurrence: RO)
  Receive Date: 20180221
  Receipt Date: 20200630
  Transmission Date: 20200713
  Serious: Yes (Other)
  Sender: FDA-Public Use
  Company Number: RO-ASTELLAS-2017US027273

PATIENT
  Age: 47 Year
  Sex: Female
  Weight: 60 kg

DRUGS (1)
  1. ERLOTINIB [Suspect]
     Active Substance: ERLOTINIB
     Indication: LUNG CANCER METASTATIC
     Route: 048
     Dates: start: 20140704

REACTIONS (18)
  - Skin atrophy [Not Recovered/Not Resolved]
  - Erythema [Unknown]
  - Vomiting [Unknown]
  - Rhinorrhoea [Not Recovered/Not Resolved]
  - Tooth disorder [Unknown]
  - Ear pruritus [Not Recovered/Not Resolved]
  - Rhinitis [Not Recovered/Not Resolved]
  - Hair disorder [Not Recovered/Not Resolved]
  - Pruritus [Not Recovered/Not Resolved]
  - Dizziness [Unknown]
  - Paraesthesia [Not Recovered/Not Resolved]
  - Visual acuity reduced [Not Recovered/Not Resolved]
  - Deafness unilateral [Not Recovered/Not Resolved]
  - Onychoclasis [Not Recovered/Not Resolved]
  - Neck pain [Not Recovered/Not Resolved]
  - Upper limb fracture [Unknown]
  - Skin fissures [Not Recovered/Not Resolved]
  - Nail infection [Unknown]

NARRATIVE: CASE EVENT DATE: 201706
